FAERS Safety Report 21692098 (Version 1)
Quarter: 2022Q4

REPORT INFORMATION
  Report Type: Spontaneous
  Country: AE (occurrence: AE)
  Receive Date: 20221207
  Receipt Date: 20221207
  Transmission Date: 20230113
  Serious: Yes (Hospitalization, Other)
  Sender: FDA-Public Use
  Company Number: AE-SUN PHARMACEUTICAL INDUSTRIES LTD-2022RR-366489

PATIENT
  Age: 70 Year
  Sex: Female

DRUGS (2)
  1. METOPROLOL [Suspect]
     Active Substance: METOPROLOL
     Indication: Hypertension
     Dosage: 100 MILLIGRAM, UNK
     Route: 065
  2. METOPROLOL [Suspect]
     Active Substance: METOPROLOL
     Dosage: 200 MILLIGRAM, 5 DAYS BEFORE EVENT
     Route: 065

REACTIONS (3)
  - Hypotension [Unknown]
  - Bradycardia [Unknown]
  - Overdose [Unknown]
